FAERS Safety Report 25975972 (Version 2)
Quarter: 2025Q4

REPORT INFORMATION
  Report Type: Spontaneous
  Country: US (occurrence: US)
  Receive Date: 20251029
  Receipt Date: 20251106
  Transmission Date: 20260118
  Serious: Yes (Other)
  Sender: IOVANCE BIOTHERAPEUTICS MANUFACTURING LLC
  Company Number: US-IOVANCE BIOTHERAPEUTICS INC.-IOV2025000077

PATIENT

DRUGS (3)
  1. PROLEUKIN [Suspect]
     Active Substance: ALDESLEUKIN
     Indication: Product used for unknown indication
     Dosage: UNK
     Route: 065
     Dates: start: 20251015
  2. PROLEUKIN [Suspect]
     Active Substance: ALDESLEUKIN
     Dosage: UNK
     Route: 065
     Dates: start: 20251016
  3. AMTAGVI [Suspect]
     Active Substance: LIFILEUCEL
     Indication: Product used for unknown indication
     Route: 065

REACTIONS (12)
  - Neurotoxicity [Unknown]
  - Unresponsive to stimuli [Unknown]
  - Depressed level of consciousness [Unknown]
  - Hypoxia [Unknown]
  - Respiratory failure [Unknown]
  - Pneumonia [Unknown]
  - Pulmonary oedema [Unknown]
  - Rash erythematous [Unknown]
  - Somnolence [Unknown]
  - Rash maculo-papular [Unknown]
  - Pleural effusion [Unknown]
  - Blood creatinine increased [Unknown]

NARRATIVE: CASE EVENT DATE: 20251016
